FAERS Safety Report 10992422 (Version 1)
Quarter: 2015Q2

REPORT INFORMATION
  Report Type: Spontaneous
  Country: BR (occurrence: BR)
  Receive Date: 20150406
  Receipt Date: 20150406
  Transmission Date: 20150821
  Serious: Yes (Hospitalization)
  Sender: FDA-Public Use
  Company Number: PHHY2015BR040309

PATIENT
  Sex: Female

DRUGS (1)
  1. LEPONEX [Suspect]
     Active Substance: CLOZAPINE
     Indication: DEMENTIA WITH LEWY BODIES
     Dosage: UNK
     Route: 065

REACTIONS (3)
  - Dermatitis allergic [Not Recovered/Not Resolved]
  - Product use issue [Unknown]
  - Skin wound [Not Recovered/Not Resolved]
